FAERS Safety Report 11625612 (Version 1)
Quarter: 2015Q4

REPORT INFORMATION
  Report Type: Spontaneous
  Country: US (occurrence: US)
  Receive Date: 20151013
  Receipt Date: 20151013
  Transmission Date: 20160304
  Serious: No
  Sender: FDA-Public Use
  Company Number: US-ACTELION PHARMACEUTICALS US, INC.-A-US2014-106665

PATIENT
  Age: 55 Year
  Sex: Female

DRUGS (5)
  1. XARELTO [Concomitant]
     Active Substance: RIVAROXABAN
  2. LETAIRIS [Concomitant]
     Active Substance: AMBRISENTAN
  3. COUMADIN [Concomitant]
     Active Substance: WARFARIN SODIUM
  4. VELETRI [Suspect]
     Active Substance: EPOPROSTENOL
     Indication: PULMONARY ARTERIAL HYPERTENSION
     Dosage: 19.5 NG/KG, PER MIN
     Route: 042
     Dates: start: 20141001
  5. VELETRI [Suspect]
     Active Substance: EPOPROSTENOL
     Dosage: 8.5 NG/KG, PER MIN
     Route: 042
     Dates: end: 20150921

REACTIONS (13)
  - Somnolence [Unknown]
  - Nasopharyngitis [Unknown]
  - Chills [Unknown]
  - Pain in jaw [Unknown]
  - Respiratory tract congestion [Unknown]
  - Influenza like illness [Unknown]
  - Nausea [Recovered/Resolved]
  - Fatigue [Unknown]
  - Cough [Unknown]
  - Nasal congestion [Unknown]
  - Hypotension [Unknown]
  - Pain [Unknown]
  - Diarrhoea [Unknown]

NARRATIVE: CASE EVENT DATE: 201509
